FAERS Safety Report 9490634 (Version 1)
Quarter: 2013Q3

REPORT INFORMATION
  Report Type: Spontaneous
  Country: FR (occurrence: FR)
  Receive Date: 20130830
  Receipt Date: 20130830
  Transmission Date: 20140515
  Serious: Yes (Life-Threatening)
  Sender: FDA-Public Use
  Company Number: PHHY2013FR094092

PATIENT
  Age: 31 Year
  Sex: Female

DRUGS (11)
  1. TRILEPTAL [Suspect]
     Dosage: 2 DF, QD
     Route: 048
     Dates: end: 20130426
  2. HALDOL DECANOAS [Suspect]
     Indication: PSYCHOTIC DISORDER
     Dosage: UNK UKN, UNK
     Dates: start: 2012
  3. HALDOL DECANOAS [Suspect]
     Dosage: 15 MG, UNK
     Route: 048
     Dates: start: 20130424, end: 20130426
  4. TERCIAN [Suspect]
     Dosage: 80 MG, QD
     Route: 048
     Dates: end: 20130426
  5. THERALENE [Suspect]
     Dosage: 62.5 MG, QD
     Route: 048
     Dates: end: 20130426
  6. THERALENE [Suspect]
     Dosage: UNK UKN, UNK
     Route: 048
     Dates: start: 20130502
  7. NOCTAMIDE [Suspect]
     Dosage: 2 MG, QD
     Route: 048
     Dates: end: 20130426
  8. NOCTAMIDE [Suspect]
     Dosage: UNK UKN, UNK
     Route: 048
     Dates: start: 20130502
  9. SERESTA [Suspect]
     Dosage: 75 MG, QD
     Route: 048
     Dates: end: 20130426
  10. LEPTICUR [Suspect]
     Dosage: UNK UKN, QD
     Route: 048
     Dates: end: 20130426
  11. MOVICOL [Suspect]
     Dosage: UNK UKN, BID
     Route: 048
     Dates: end: 20130426

REACTIONS (1)
  - Neuroleptic malignant syndrome [Recovered/Resolved]
